FAERS Safety Report 7994817-4 (Version None)
Quarter: 2011Q4

REPORT INFORMATION
  Report Type: 
  Country: None (occurrence: None)
  Receive Date: 20111220
  Receipt Date: 20111215
  Transmission Date: 20120403
  Serious: Yes (Hospitalization)
  Sender: FDA-Public Use
  Company Number: AU-B.I. PHARMACEUTICALS,INC./RIDGEFIELD-2011-AU-02361AU

PATIENT
  Sex: Male
  Weight: 103 kg

DRUGS (5)
  1. PRADAXA [Suspect]
     Indication: ATRIAL FIBRILLATION
     Dosage: 300 MG
     Dates: start: 20110710, end: 20111013
  2. PHYSIOTENS [Concomitant]
     Dates: start: 20101213
  3. COVERAM [Concomitant]
     Dosage: 10/5 MG
     Dates: start: 20101213
  4. LIPITOR [Concomitant]
  5. SOLAVERT [Concomitant]

REACTIONS (2)
  - HEMIPLEGIA [None]
  - CEREBROVASCULAR ACCIDENT [None]
